FAERS Safety Report 9633574 (Version 4)
Quarter: 2013Q4

REPORT INFORMATION
  Report Type: Spontaneous
  Country: AU (occurrence: AU)
  Receive Date: 20131021
  Receipt Date: 20131129
  Transmission Date: 20140711
  Serious: Yes (Death, Hospitalization, Other)
  Sender: FDA-Public Use
  Company Number: PHHY2013AU117972

PATIENT
  Age: 60 Year
  Sex: Female

DRUGS (11)
  1. AFINITOR [Suspect]
     Indication: BREAST CANCER METASTATIC
     Dosage: 10 MG, DAILY
     Route: 048
     Dates: start: 20130823, end: 20130827
  2. ZOMETA [Concomitant]
     Dosage: 4 MG, QMO
  3. ENDONE [Concomitant]
     Indication: PAIN
     Dosage: 5 MG, PRN
  4. MOBIC [Concomitant]
     Indication: HYPOCALCAEMIA
     Dosage: 15 MG, DAILY
  5. ALDACTONE [Concomitant]
     Dosage: 25 MG, BID
     Route: 048
  6. AROMASIN [Concomitant]
     Dosage: 25 MG, DAILY
     Route: 048
  7. DEXAMETHASONE [Concomitant]
     Dosage: 2 MG, DAILY
     Route: 048
  8. NAPROXEN [Concomitant]
     Dosage: 1000 MG, DAILY
     Route: 048
  9. OSTELIN [Concomitant]
     Dosage: 1 DF, DAILY
     Route: 048
  10. SOMAC [Concomitant]
     Dosage: 40 MG
     Route: 048
  11. GABAPENTIN [Concomitant]
     Dosage: 300 MG, QD

REACTIONS (6)
  - Death [Fatal]
  - Ascites [Unknown]
  - Vomiting [Recovering/Resolving]
  - Coma [Unknown]
  - Gamma-glutamyltransferase increased [Unknown]
  - Malignant neoplasm progression [Unknown]
